FAERS Safety Report 9339484 (Version 2)
Quarter: 2013Q3

REPORT INFORMATION
  Report Type: Report from Study
  Country: KR (occurrence: KR)
  Receive Date: 20130610
  Receipt Date: 20130819
  Transmission Date: 20140515
  Serious: Yes (Other)
  Sender: FDA-Public Use
  Company Number: KR-ELI_LILLY_AND_COMPANY-KR201305009356

PATIENT
  Age: 94 Year
  Sex: Female

DRUGS (1)
  1. TERIPARATIDE [Suspect]
     Indication: OSTEOPOROSIS
     Dosage: 20UG, DAILY
     Dates: start: 20130528

REACTIONS (2)
  - Loss of consciousness [Recovered/Resolved]
  - General physical health deterioration [Recovered/Resolved]
